FAERS Safety Report 5800794-4 (Version None)
Quarter: 2008Q3

REPORT INFORMATION
  Report Type: 
  Country: None (occurrence: None)
  Receive Date: 20080701
  Receipt Date: 20080616
  Transmission Date: 20090109
  Serious: Yes (Other)
  Sender: FDA-Public Use
  Company Number: A-CH2008-20919

PATIENT
  Age: 40 Year
  Sex: Female
  Weight: 55 kg

DRUGS (11)
  1. TRACLEER [Suspect]
     Indication: PULMONARY HYPERTENSION
     Dosage: 62.5 MG, BID, ORAL; 125 MG, BID, ORAL
     Route: 048
     Dates: start: 20030212, end: 20030313
  2. TRACLEER [Suspect]
     Indication: PULMONARY HYPERTENSION
     Dosage: 62.5 MG, BID, ORAL; 125 MG, BID, ORAL
     Route: 048
     Dates: start: 20030314, end: 20080527
  3. SINOTROM (ACENOCOUMAROL) [Concomitant]
  4. ALDACTONE [Concomitant]
  5. DEPAKINE (VALPROIC ACID) [Concomitant]
  6. LAMICTAL [Concomitant]
  7. BUMETANIDE [Concomitant]
  8. SIPRALEXA (ESCITALOPRAM) [Concomitant]
  9. MOVICOL (SODIUM CHLORIDE, SODIUM BICARBONATE, POTASSIUM CHLORIDE, MACR [Concomitant]
  10. CACIT (CALCIUM CARBONATE, CITRIC ACID) [Concomitant]
  11. ACTONEL [Concomitant]

REACTIONS (1)
  - LUNG TRANSPLANT [None]
